FAERS Safety Report 6010861-0 (Version None)
Quarter: 2008Q4

REPORT INFORMATION
  Report Type: 
  Country: None (occurrence: None)
  Receive Date: 20081218
  Receipt Date: 20081216
  Transmission Date: 20090506
  Serious: Yes (Other)
  Sender: FDA-Public Use
  Company Number: US-BAYER-200812956BCC

PATIENT
  Age: 71 Year
  Sex: Female
  Weight: 70 kg

DRUGS (4)
  1. ASPIRIN [Suspect]
     Indication: ISCHAEMIC HEART DISEASE PROPHYLAXIS
     Dosage: TOTAL DAILY DOSE: 325 MG  UNIT DOSE: 325 MG
     Route: 048
     Dates: start: 19980101
  2. METFORMIN HCL [Concomitant]
  3. CAPTOPRIL [Concomitant]
  4. CLONAZEPAM [Concomitant]

REACTIONS (3)
  - CONTUSION [None]
  - INCREASED TENDENCY TO BRUISE [None]
  - PARKINSON'S DISEASE [None]
